FAERS Safety Report 6896299-2 (Version None)
Quarter: 2010Q3

REPORT INFORMATION
  Report Type: 
  Country: None (occurrence: None)
  Receive Date: 20100802
  Receipt Date: 20100727
  Transmission Date: 20110219
  Serious: Yes (Hospitalization)
  Sender: FDA-Public Use
  Company Number: B0667761A

PATIENT
  Sex: Female
  Weight: 63 kg

DRUGS (12)
  1. ALKERAN [Suspect]
     Indication: STEM CELL TRANSPLANT
     Dosage: 100MG PER DAY
     Route: 042
     Dates: start: 20060515, end: 20060516
  2. COTRIM [Suspect]
     Dosage: 4IUAX PER DAY
     Route: 048
     Dates: start: 20060508, end: 20060516
  3. CIPROFLOXACIN HCL [Suspect]
     Dosage: 600MG PER DAY
     Route: 048
     Dates: start: 20060515, end: 20060601
  4. DIFLUCAN [Suspect]
     Dosage: 200MG PER DAY
     Route: 048
     Dates: start: 20060515, end: 20060525
  5. FAMOTIDINE [Suspect]
     Dosage: 20MG PER DAY
     Route: 048
     Dates: start: 20060513, end: 20060608
  6. MAXIPIME [Suspect]
     Dosage: 4G PER DAY
     Route: 042
     Dates: start: 20060525, end: 20060531
  7. FUNGUARD [Suspect]
     Dosage: 150MG PER DAY
     Route: 042
     Dates: start: 20060526, end: 20060530
  8. NEUTROGIN [Concomitant]
     Dates: start: 20060519, end: 20060531
  9. ACYCLOVIR [Concomitant]
     Dosage: 1.25G PER DAY
     Route: 048
     Dates: start: 20060513, end: 20060608
  10. FULCALIQ [Concomitant]
     Dosage: 903ML PER DAY
     Route: 042
     Dates: start: 20060519, end: 20060519
  11. FULCALIQ [Concomitant]
     Dosage: 1003ML PER DAY
     Route: 042
     Dates: start: 20060520, end: 20060520
  12. FULCALIQ [Concomitant]
     Dosage: 1103ML PER DAY
     Route: 042
     Dates: start: 20060521, end: 20060616

REACTIONS (2)
  - FEBRILE NEUTROPENIA [None]
  - HERPES ZOSTER [None]
